FAERS Safety Report 5861330-X (Version None)
Quarter: 2008Q3

REPORT INFORMATION
  Report Type: 
  Country: None (occurrence: None)
  Receive Date: 20080826
  Receipt Date: 20080701
  Transmission Date: 20090109
  Serious: Yes (Death)
  Sender: FDA-Public Use
  Company Number: 14663

PATIENT
  Age: 53 Year
  Sex: Male

DRUGS (6)
  1. MORPHINE SULFATE [Suspect]
     Indication: PROCEDURAL PAIN
  2. MORPHINE SULFATE [Suspect]
     Indication: SPINAL OPERATION
  3. MORPHINE SULFATE IR 30MG TABLETS [Concomitant]
  4. SOMA (CARISOPRODOL) 350MG TABLETS [Concomitant]
  5. TRAZODONE 150MG TABLETS [Concomitant]
  6. PROZAC (FLUOXETINE HCL) 40MG CAPSULES [Concomitant]

REACTIONS (2)
  - ACCIDENTAL OVERDOSE [None]
  - PHARMACEUTICAL PRODUCT COMPLAINT [None]
